FAERS Safety Report 9892143 (Version 1)
Quarter: 2014Q1

REPORT INFORMATION
  Report Type: Spontaneous
  Country: PR (occurrence: US)
  Receive Date: 20140212
  Receipt Date: 20140212
  Transmission Date: 20141002
  Serious: No
  Sender: FDA-Public Use
  Company Number: PR-009507513-1402USA004443

PATIENT
  Age: 4 Year
  Sex: Female
  Weight: 22.68 kg

DRUGS (2)
  1. CLARITIN CHEWABLE TABLETS [Suspect]
     Indication: HYPERSENSITIVITY
     Dosage: UNK, UNKNOWN
     Route: 048
  2. CLARITIN CHEWABLE TABLETS [Suspect]
     Indication: COUGH

REACTIONS (2)
  - Psychomotor hyperactivity [Unknown]
  - Accidental exposure to product by child [Unknown]
